FAERS Safety Report 16581456 (Version 3)
Quarter: 2020Q3

REPORT INFORMATION
  Report Type: Spontaneous
  Country: AU (occurrence: AU)
  Receive Date: 20190716
  Receipt Date: 20200702
  Transmission Date: 20201102
  Serious: Yes (Life-Threatening, Hospitalization, Other)
  Sender: FDA-Public Use
  Company Number: AU-ALLERGAN-1928673US

PATIENT
  Sex: Female

DRUGS (1)
  1. ESTRADIOL UNK [Suspect]
     Active Substance: ESTRADIOL
     Indication: PRODUCT USED FOR UNKNOWN INDICATION
     Dosage: UNK
     Route: 065

REACTIONS (4)
  - Atypical haemolytic uraemic syndrome [Recovered/Resolved]
  - Off label use [Unknown]
  - Abortion spontaneous [Unknown]
  - Pregnancy [Unknown]
